FAERS Safety Report 6427575-5 (Version None)
Quarter: 2009Q4

REPORT INFORMATION
  Report Type: 
  Country: None (occurrence: None)
  Receive Date: 20091030
  Receipt Date: 20091019
  Transmission Date: 20100525
  Serious: Yes (Hospitalization, Other)
  Sender: FDA-Public Use
  Company Number: 2009-190754-NL

PATIENT
  Age: 27 Year
  Sex: Female
  Weight: 63 kg

DRUGS (1)
  1. NUVARING [Suspect]
     Indication: CONTRACEPTION
     Dates: start: 20060101, end: 20080101

REACTIONS (19)
  - ARTHRALGIA [None]
  - BREAST HYPERPLASIA [None]
  - CHEST PAIN [None]
  - COSTOCHONDRITIS [None]
  - COUGH [None]
  - DYSPNOEA [None]
  - FACTOR V DEFICIENCY [None]
  - FIBRIN D DIMER INCREASED [None]
  - FIBROCYSTIC BREAST DISEASE [None]
  - HILAR LYMPHADENOPATHY [None]
  - INCISION SITE PAIN [None]
  - LUNG CONSOLIDATION [None]
  - LUNG DISORDER [None]
  - PAIN [None]
  - PLEURAL EFFUSION [None]
  - PNEUMONIA [None]
  - PULMONARY EMBOLISM [None]
  - PULMONARY MASS [None]
  - PULMONARY SARCOIDOSIS [None]
